FAERS Safety Report 23635306 (Version 7)
Quarter: 2024Q2

REPORT INFORMATION
  Report Type: Spontaneous
  Country: JP (occurrence: JP)
  Receive Date: 20240315
  Receipt Date: 20240510
  Transmission Date: 20240716
  Serious: Yes (Death, Hospitalization, Other)
  Sender: FDA-Public Use
  Company Number: JP-JNJFOC-20240340796

PATIENT
  Age: 7 Decade
  Sex: Female

DRUGS (4)
  1. OPSUMIT [Suspect]
     Active Substance: MACITENTAN
     Indication: Pulmonary arterial hypertension
     Route: 048
     Dates: start: 20231220, end: 20240227
  2. UPTRAVI [Suspect]
     Active Substance: SELEXIPAG
     Indication: Pulmonary arterial hypertension
     Route: 048
     Dates: start: 20231220, end: 20240227
  3. UPTRAVI [Suspect]
     Active Substance: SELEXIPAG
     Route: 048
     Dates: start: 2023, end: 2024
  4. REVATIO [Concomitant]
     Active Substance: SILDENAFIL CITRATE
     Indication: Pulmonary arterial hypertension
     Dates: end: 20240227

REACTIONS (5)
  - Cardiac failure congestive [Fatal]
  - Pulmonary oedema [Fatal]
  - Renal impairment [Unknown]
  - Interstitial lung disease [Unknown]
  - Cardiac failure [Unknown]

NARRATIVE: CASE EVENT DATE: 20240101
